FAERS Safety Report 5400852-2 (Version None)
Quarter: 2007Q3

REPORT INFORMATION
  Report Type: 
  Country: None (occurrence: None)
  Receive Date: 20070730
  Receipt Date: 20070413
  Transmission Date: 20080115
  Serious: No
  Sender: FDA-Public Use
  Company Number: A0647483A

PATIENT
  Sex: Female

DRUGS (1)
  1. IMITREX [Suspect]
     Indication: MIGRAINE
     Route: 048

REACTIONS (2)
  - BLOOD PRESSURE INCREASED [None]
  - WRONG TECHNIQUE IN DRUG USAGE PROCESS [None]
